FAERS Safety Report 8151322-2 (Version None)
Quarter: 2012Q1

REPORT INFORMATION
  Report Type: 
  Country: None (occurrence: None)
  Receive Date: 20120220
  Receipt Date: 20120209
  Transmission Date: 20120608
  Serious: Yes (Hospitalization)
  Sender: FDA-Public Use
  Company Number: US-ASTRAZENECA-2011SE65705

PATIENT
  Age: 43 Year
  Sex: Male
  Weight: 90.7 kg

DRUGS (9)
  1. SEROQUEL [Suspect]
     Indication: SLEEP DISORDER
     Route: 048
  2. SEROQUEL [Suspect]
     Indication: ANXIETY
     Route: 048
  3. SEROQUEL [Suspect]
     Indication: DEPRESSION
     Route: 048
  4. SEROQUEL [Suspect]
     Route: 048
     Dates: start: 20110901
  5. LORATADINE [Concomitant]
     Indication: HYPERSENSITIVITY
     Dosage: 100 MG EVERY FOUR DAYS
     Route: 048
     Dates: start: 20010101
  6. SEROQUEL [Suspect]
     Route: 048
     Dates: start: 20110901
  7. SEROQUEL [Suspect]
     Route: 048
     Dates: start: 20110901
  8. VALIUM [Concomitant]
     Indication: ANXIETY
     Route: 048
     Dates: start: 20111001
  9. VICODIN [Concomitant]
     Route: 048

REACTIONS (5)
  - MENTAL DISORDER [None]
  - DRUG PRESCRIBING ERROR [None]
  - INSOMNIA [None]
  - DRUG DOSE OMISSION [None]
  - SUICIDAL IDEATION [None]
